FAERS Safety Report 7006602-0 (Version None)
Quarter: 2010Q3

REPORT INFORMATION
  Report Type: 
  Country: None (occurrence: None)
  Receive Date: 20100921
  Receipt Date: 20100921
  Transmission Date: 20110219
  Serious: Yes (Hospitalization)
  Sender: FDA-Public Use
  Company Number: None

PATIENT
  Sex: Female
  Weight: 49.2 kg

DRUGS (4)
  1. FLUOROURACIL [Suspect]
     Dosage: 4172 MG
     Dates: end: 20100811
  2. BEVACIZUMAB (RHUMAB VEGF) [Suspect]
     Dosage: 247 MG
     Dates: end: 20100811
  3. LEUCOVORIN CALCIUM [Suspect]
     Dosage: 596 MG
     Dates: end: 20100811
  4. ELOXATIN [Suspect]
     Dosage: 97 MG
     Dates: end: 20100811

REACTIONS (8)
  - ABDOMINAL PAIN [None]
  - ENDOSCOPY UPPER GASTROINTESTINAL TRACT ABNORMAL [None]
  - HAEMATEMESIS [None]
  - HEADACHE [None]
  - INCREASED UPPER AIRWAY SECRETION [None]
  - NAUSEA [None]
  - PANCREATITIS [None]
  - VOMITING [None]
